FAERS Safety Report 8634101 (Version 2)
Quarter: 2013Q1

REPORT INFORMATION
  Report Type: Spontaneous
  Country: US (occurrence: None)
  Receive Date: 20120608
  Receipt Date: 20121106
  Transmission Date: 20140127
  Serious: Yes (Other)
  Sender: FDA-Public Use
  Company Number: 2012-2397

PATIENT
  Age: 9 Year
  Sex: Female
  Weight: 21.7 kg

DRUGS (3)
  1. INCRELEX [Suspect]
     Indication: BODY HEIGHT BELOW NORMAL
     Dosage: 50 UNITS (25 UNITS,2 IN 1 D),PARENTERAL
     Route: 051
     Dates: start: 20120301, end: 20120521
  2. INCRELEX [Suspect]
     Indication: OFF LABEL USE
     Dosage: 50 UNITS (25 UNITS,2 IN 1 D),PARENTERAL
     Route: 051
     Dates: start: 20120301, end: 20120521
  3. CONCERTA [Concomitant]

REACTIONS (1)
  - Malignant melanoma [None]
